FAERS Safety Report 9171022 (Version 2)
Quarter: 2013Q1

REPORT INFORMATION
  Report Type: Spontaneous
  Country: US (occurrence: US)
  Receive Date: 20130319
  Receipt Date: 20130322
  Transmission Date: 20140127
  Serious: No
  Sender: FDA-Public Use
  Company Number: US-PFIZER INC-2013085854

PATIENT
  Age: 72 Year
  Sex: Male

DRUGS (4)
  1. XALKORI [Suspect]
     Indication: NON-SMALL CELL LUNG CANCER
     Dosage: UNK
  2. HYDROCHLOROTHIAZIDE/VALSARTAN [Interacting]
     Dosage: 160/12.5
  3. METOPROLOL TARTRATE [Interacting]
     Dosage: UNK
  4. LIPITOR [Interacting]
     Indication: BLOOD CHOLESTEROL INCREASED
     Dosage: 40 MG, UNK

REACTIONS (4)
  - Drug interaction [Unknown]
  - Blood pressure decreased [Recovered/Resolved]
  - Blood cholesterol decreased [Recovered/Resolved]
  - Oedema [Unknown]
